FAERS Safety Report 18049099 (Version 1)
Quarter: 2020Q3

REPORT INFORMATION
  Report Type: Report from Study
  Country: US (occurrence: US)
  Receive Date: 20200721
  Receipt Date: 20200721
  Transmission Date: 20201103
  Serious: Yes (Other)
  Sender: FDA-Public Use
  Company Number: US-ASTRAZENECA-2020SE65816

PATIENT
  Age: 19572 Day
  Sex: Female
  Weight: 115.7 kg

DRUGS (3)
  1. AMARYL [Concomitant]
     Active Substance: GLIMEPIRIDE
  2. INSULIN OTC [Concomitant]
  3. BYDUREON BCISE [Suspect]
     Active Substance: EXENATIDE
     Indication: TYPE 2 DIABETES MELLITUS
     Route: 065
     Dates: start: 20200512, end: 20200609

REACTIONS (7)
  - Pruritus [Not Recovered/Not Resolved]
  - Incorrect dose administered by device [Unknown]
  - Product storage error [Unknown]
  - Swelling [Not Recovered/Not Resolved]
  - Erythema [Not Recovered/Not Resolved]
  - Injection site extravasation [Unknown]
  - Rash [Not Recovered/Not Resolved]

NARRATIVE: CASE EVENT DATE: 20200512
